FAERS Safety Report 12539780 (Version 2)
Quarter: 2016Q4

REPORT INFORMATION
  Report Type: Spontaneous
  Country: US (occurrence: US)
  Receive Date: 20160708
  Receipt Date: 20161007
  Transmission Date: 20170207
  Serious: Yes (Hospitalization, Other)
  Sender: FDA-Public Use
  Company Number: US-ELI_LILLY_AND_COMPANY-US201607000846

PATIENT
  Age: 27 Year
  Sex: Male

DRUGS (2)
  1. ZYPREXA ZYDIS [Suspect]
     Active Substance: OLANZAPINE
     Indication: PRODUCT USED FOR UNKNOWN INDICATION
     Dosage: UNK, UNKNOWN
     Route: 065
  2. ZYPREXA ZYDIS [Suspect]
     Active Substance: OLANZAPINE
     Dosage: 5 MG, PRN
     Route: 060
     Dates: start: 20160627, end: 20160628

REACTIONS (7)
  - Nightmare [Recovered/Resolved]
  - Dysphonia [Recovered/Resolved]
  - Memory impairment [Not Recovered/Not Resolved]
  - Post-traumatic stress disorder [Recovered/Resolved]
  - Cough [Recovered/Resolved]
  - Hallucination [Recovered/Resolved]
  - Somnolence [Unknown]

NARRATIVE: CASE EVENT DATE: 20160628
